FAERS Safety Report 6155255-2 (Version None)
Quarter: 2009Q2

REPORT INFORMATION
  Report Type: 
  Country: None (occurrence: None)
  Receive Date: 20090415
  Receipt Date: 20090408
  Transmission Date: 20091009
  Serious: Yes (Other)
  Sender: FDA-Public Use
  Company Number: PHHY2009BR10378

PATIENT
  Age: 56 Year
  Sex: Female

DRUGS (3)
  1. RASILEZ [Suspect]
     Dosage: 300 MG
  2. ANTIHYPERTENSIVES [Concomitant]
  3. IMMUNOSUPPRESSANTS [Concomitant]

REACTIONS (2)
  - PROTEINURIA [None]
  - RENAL IMPAIRMENT [None]
